FAERS Safety Report 25140461 (Version 1)
Quarter: 2025Q1

REPORT INFORMATION
  Report Type: Spontaneous
  Country: US (occurrence: None)
  Receive Date: 20250328
  Receipt Date: 20250328
  Transmission Date: 20250409
  Serious: Yes (Hospitalization)
  Sender: FDA-CTU
  Company Number: None

PATIENT
  Age: 78 Year
  Sex: Male
  Weight: 127 kg

DRUGS (1)
  1. VANCOMYCIN HYDROCHLORIDE [Suspect]
     Active Substance: VANCOMYCIN HYDROCHLORIDE
     Dosage: FREQUENCY : DAILY;?
     Route: 042
     Dates: start: 20250101, end: 20250107

REACTIONS (2)
  - Erythema multiforme [None]
  - Infusion related reaction [None]

NARRATIVE: CASE EVENT DATE: 20250105
